FAERS Safety Report 8543647-3 (Version None)
Quarter: 2012Q3

REPORT INFORMATION
  Report Type: 
  Country: None (occurrence: None)
  Receive Date: 20120727
  Receipt Date: 20080415
  Transmission Date: 20120928
  Serious: Yes (Other)
  Sender: FDA-Public Use
  Company Number: CO-PFIZER INC-2012180244

PATIENT
  Age: 54 Year
  Sex: Male

DRUGS (4)
  1. NIFEDIPINE [Concomitant]
     Dosage: 30 MG EVERY 12 HOURS
  2. LIPITOR [Suspect]
     Indication: DYSLIPIDAEMIA
     Dosage: 10 MG EVERY 24 HOURS
  3. ASPIRIN [Concomitant]
     Dosage: 100 MG EVERY 24 HOURS
  4. METOPROLOL TARTRATE [Concomitant]
     Dosage: UNK

REACTIONS (2)
  - ANGIOPATHY [None]
  - GASTROINTESTINAL HAEMORRHAGE [None]
